FAERS Safety Report 5094230-6 (Version None)
Quarter: 2006Q3

REPORT INFORMATION
  Report Type: 
  Country: None (occurrence: None)
  Receive Date: 20060830
  Receipt Date: 20060830
  Transmission Date: 20061208
  Serious: Yes (Hospitalization)
  Sender: FDA-Public Use
  Company Number: None

PATIENT
  Sex: Female
  Weight: 46.7205 kg

DRUGS (1)
  1. RAPTIVA [Suspect]
     Indication: PSORIASIS
     Dosage: 0.5 ML EVERY WEEK SQ
     Route: 058
     Dates: start: 20060201, end: 20060807

REACTIONS (4)
  - ASTHENIA [None]
  - CONTUSION [None]
  - FALL [None]
  - RED BLOOD CELL COUNT DECREASED [None]
